FAERS Safety Report 21968327 (Version 2)
Quarter: 2023Q1

REPORT INFORMATION
  Report Type: Report from Study
  Country: US (occurrence: US)
  Receive Date: 20230208
  Receipt Date: 20230220
  Transmission Date: 20230418
  Serious: No
  Sender: FDA-Public Use
  Company Number: US-BIOVITRUM-2023US01975

PATIENT
  Sex: Female

DRUGS (1)
  1. KINERET [Suspect]
     Active Substance: ANAKINRA
     Indication: Product used for unknown indication
     Dates: start: 20230125

REACTIONS (5)
  - Heart rate increased [Unknown]
  - Pain [Unknown]
  - Peripheral swelling [Unknown]
  - Palpitations [Recovered/Resolved]
  - Headache [Recovered/Resolved]
